FAERS Safety Report 12884504 (Version 1)
Quarter: 2016Q4

REPORT INFORMATION
  Report Type: Spontaneous
  Country: US (occurrence: US)
  Receive Date: 20161026
  Receipt Date: 20161026
  Transmission Date: 20170207
  Serious: Yes (Other)
  Sender: FDA-Public Use
  Company Number: US-SUN PHARMACEUTICAL INDUSTRIES LTD-2016US-126505

PATIENT
  Age: 24 Year
  Sex: Female

DRUGS (3)
  1. PAROXETINE. [Interacting]
     Active Substance: PAROXETINE
     Indication: DEPRESSION
     Route: 065
  2. ACETAMINOPHEN AND CODEINE [Concomitant]
     Active Substance: ACETAMINOPHEN\CODEINE PHOSPHATE
     Indication: PRODUCT USED FOR UNKNOWN INDICATION
     Route: 065
  3. ZOLPIDEM [Suspect]
     Active Substance: ZOLPIDEM\ZOLPIDEM TARTRATE
     Indication: INSOMNIA
     Dosage: 10 MG, QD
     Route: 065

REACTIONS (5)
  - Delirium [Recovered/Resolved]
  - Illusion [Recovered/Resolved]
  - Mental status changes [Recovered/Resolved]
  - Hallucination, tactile [Recovered/Resolved]
  - Drug interaction [Recovered/Resolved]
